FAERS Safety Report 7975297-1 (Version None)
Quarter: 2011Q4

REPORT INFORMATION
  Report Type: 
  Country: None (occurrence: None)
  Receive Date: 20111213
  Receipt Date: 20110923
  Transmission Date: 20120403
  Serious: Yes (Other)
  Sender: FDA-Public Use
  Company Number: US-AMGEN-USASP2011049330

PATIENT
  Age: 70 Year
  Sex: Female

DRUGS (1)
  1. ENBREL [Suspect]
     Indication: RHEUMATOID ARTHRITIS
     Dosage: 50 MG, QWK
     Dates: start: 20070101, end: 20110915

REACTIONS (15)
  - SKIN ATROPHY [None]
  - TOXOPLASMOSIS [None]
  - RHEUMATOID ARTHRITIS [None]
  - INCREASED TENDENCY TO BRUISE [None]
  - SCAR [None]
  - BONE DEFORMITY [None]
  - INJECTION SITE HAEMORRHAGE [None]
  - INJECTION SITE PAIN [None]
  - INJECTION SITE DISCOLOURATION [None]
  - BONE PAIN [None]
  - SPIDER VEIN [None]
  - DIVERTICULITIS [None]
  - SKIN DISORDER [None]
  - INJECTION SITE HAEMATOMA [None]
  - NASOPHARYNGITIS [None]
